FAERS Safety Report 6005750-1 (Version None)
Quarter: 2008Q4

REPORT INFORMATION
  Report Type: 
  Country: None (occurrence: None)
  Receive Date: 20081217
  Receipt Date: 20081210
  Transmission Date: 20090506
  Serious: Yes (Hospitalization, Other)
  Sender: FDA-Public Use
  Company Number: FR-BRISTOL-MYERS SQUIBB COMPANY-14440317

PATIENT
  Age: 29 Year
  Sex: Male

DRUGS (3)
  1. AMIKLIN INJ [Suspect]
     Indication: SEPSIS
     Route: 042
     Dates: start: 20080930
  2. TAZOCILLINE [Suspect]
     Indication: SEPSIS
     Route: 042
     Dates: start: 20080930, end: 20081002
  3. TARGOCID [Suspect]
     Indication: SEPSIS
     Route: 042
     Dates: start: 20080930, end: 20081002

REACTIONS (3)
  - EPILEPSY [None]
  - HYPOKALAEMIA [None]
  - STATUS EPILEPTICUS [None]
